FAERS Safety Report 11272088 (Version 1)
Quarter: 2015Q3

REPORT INFORMATION
  Report Type: Spontaneous
  Country: CA (occurrence: None)
  Receive Date: 20150713
  Receipt Date: 20150713
  Transmission Date: 20151125
  Serious: Yes (Other)
  Sender: FDA-Public Use
  Company Number: 2015AP010582

PATIENT
  Age: 55 Year
  Sex: Male

DRUGS (3)
  1. FENTANYL (FENTANYL) INFUSION [Suspect]
     Active Substance: FENTANYL
     Indication: SEDATION
  2. PAROXETINE HYDROCHLORIDE (PAROXETINE) TABLET, UNK [Suspect]
     Active Substance: PAROXETINE HYDROCHLORIDE
     Indication: DEPRESSION
  3. PROPOFOL (PROPOFOL) [Concomitant]
     Active Substance: PROPOFOL
     Indication: SEDATION

REACTIONS (2)
  - Anticholinergic syndrome [None]
  - Serotonin syndrome [None]
